FAERS Safety Report 19655662 (Version 1)
Quarter: 2021Q3

REPORT INFORMATION
  Report Type: Spontaneous
  Country: US (occurrence: US)
  Receive Date: 20210804
  Receipt Date: 20210804
  Transmission Date: 20211014
  Serious: Yes (Other)
  Sender: FDA-Public Use
  Company Number: None

PATIENT
  Age: 71 Year
  Sex: Male

DRUGS (1)
  1. PEG3350 POLYETHYLENE GLYCOL 3350 POWDER FOR ORAL SOLUTION [Suspect]
     Active Substance: POLYETHYLENE GLYCOL 3350
     Indication: CONSTIPATION
     Route: 048
     Dates: start: 20210623, end: 20210803

REACTIONS (4)
  - Product taste abnormal [None]
  - Tongue pruritus [None]
  - Throat irritation [None]
  - Product odour abnormal [None]

NARRATIVE: CASE EVENT DATE: 20210802
